FAERS Safety Report 24671497 (Version 3)
Quarter: 2025Q1

REPORT INFORMATION
  Report Type: Spontaneous
  Country: JP (occurrence: JP)
  Receive Date: 20241127
  Receipt Date: 20250213
  Transmission Date: 20250409
  Serious: Yes (Other)
  Sender: NOVO NORDISK
  Company Number: JP-NOVOPROD-1315300

PATIENT
  Age: 77 Year
  Sex: Female
  Weight: 61.6 kg

DRUGS (23)
  1. TRESIBA [Suspect]
     Active Substance: INSULIN DEGLUDEC
     Route: 058
     Dates: end: 202209
  2. TRESIBA [Suspect]
     Active Substance: INSULIN DEGLUDEC
     Route: 058
     Dates: start: 202303
  3. TRESIBA [Suspect]
     Active Substance: INSULIN DEGLUDEC
     Indication: Type 2 diabetes mellitus
     Route: 058
     Dates: start: 2022
  4. TRESIBA [Suspect]
     Active Substance: INSULIN DEGLUDEC
     Route: 058
  5. NOVORAPID [Suspect]
     Active Substance: INSULIN ASPART
     Indication: Type 2 diabetes mellitus
     Dosage: 3 IU, TID ( 3-3-3 UNITS )
     Route: 058
     Dates: start: 2022
  6. NOVORAPID [Suspect]
     Active Substance: INSULIN ASPART
     Route: 058
  7. NOVORAPID [Suspect]
     Active Substance: INSULIN ASPART
     Route: 058
     Dates: start: 202303
  8. NOVORAPID [Suspect]
     Active Substance: INSULIN ASPART
     Dosage: 5 IU, TID (5-5-5 UNITS)
     Route: 058
     Dates: start: 2022, end: 202209
  9. LINAGLIPTIN [Concomitant]
     Active Substance: LINAGLIPTIN
     Indication: Type 2 diabetes mellitus
     Dosage: 5 MG, QD
     Route: 048
     Dates: start: 202012
  10. NIFEDIPINE [Concomitant]
     Active Substance: NIFEDIPINE
     Indication: Blood pressure management
     Dosage: 80 MG, QD
     Route: 048
     Dates: start: 20210512
  11. AMLODIPINE [Concomitant]
     Active Substance: AMLODIPINE BESYLATE
     Indication: Blood pressure management
     Dosage: 10 MG, QD
     Route: 048
     Dates: start: 20210820
  12. FUROSEMIDE [Concomitant]
     Active Substance: FUROSEMIDE
     Indication: Diuretic therapy
     Dosage: 160 MG, QD
     Route: 048
     Dates: start: 20210928
  13. CILNIDIPINE [Concomitant]
     Active Substance: CILNIDIPINE
     Indication: Blood pressure management
     Dosage: 20 MG, QD
     Route: 048
     Dates: start: 202012
  14. AZILSARTAN KAMEDOXOMIL [Concomitant]
     Active Substance: AZILSARTAN KAMEDOXOMIL
     Indication: Blood pressure management
     Dosage: 40 MG, QD
     Route: 048
     Dates: start: 20220712
  15. ATORVASTATIN [Concomitant]
     Active Substance: ATORVASTATIN
     Indication: Lipids abnormal
     Dosage: 5 MG, QD
     Route: 048
     Dates: start: 202012
  16. CALCIUM CARBONATE [Concomitant]
     Active Substance: CALCIUM CARBONATE
     Indication: Hyperphosphataemia
     Dosage: 1000 MG, QD
     Route: 048
     Dates: start: 20220322
  17. DOXAZOSIN [Concomitant]
     Active Substance: DOXAZOSIN MESYLATE
     Indication: Blood pressure management
     Dosage: 4 MG, QD
     Dates: start: 20230704
  18. LINZESS [Concomitant]
     Active Substance: LINACLOTIDE
     Indication: Constipation
     Dosage: 0.25 MG, QD
     Route: 048
     Dates: start: 20211109
  19. SODIUM FERROUS CITRATE [Concomitant]
     Active Substance: SODIUM FERROUS CITRATE
     Indication: Iron deficiency
     Dosage: 50 MG, QD
     Route: 048
     Dates: start: 20210908, end: 20220826
  20. ALFAROL [Concomitant]
     Active Substance: ALFACALCIDOL
     Indication: Bone metabolism disorder
     Dosage: 0.25 ?G, QD
     Route: 048
     Dates: start: 20211223, end: 20220619
  21. MIRCERA [Concomitant]
     Active Substance: METHOXY POLYETHYLENE GLYCOL-EPOETIN BETA
     Indication: Nephrogenic anaemia
     Route: 058
     Dates: start: 20201204, end: 20230905
  22. TRULICITY [Concomitant]
     Active Substance: DULAGLUTIDE
     Indication: Product used for unknown indication
     Route: 058
     Dates: start: 202209
  23. CALCIUM CHLORIDE\DEXTROSE\MAGNESIUM CHLORIDE\SODIUM CHLORIDE\SODIUM LA [Concomitant]
     Active Substance: CALCIUM CHLORIDE\DEXTROSE\MAGNESIUM CHLORIDE\SODIUM CHLORIDE\SODIUM LACTATE
     Indication: Peritoneal dialysis
     Dates: start: 20211228, end: 20230927

REACTIONS (8)
  - Renal failure [Unknown]
  - Azotaemia [Unknown]
  - Dementia [Unknown]
  - Folate deficiency [Unknown]
  - Hypoglycaemia [Recovered/Resolved]
  - Inappropriate schedule of product administration [Unknown]
  - Incorrect dose administered [Unknown]
  - Product dose omission in error [Unknown]

NARRATIVE: CASE EVENT DATE: 20220101
